FAERS Safety Report 25702172 (Version 1)
Quarter: 2025Q3

REPORT INFORMATION
  Report Type: Spontaneous
  Country: US (occurrence: US)
  Receive Date: 20250819
  Receipt Date: 20250819
  Transmission Date: 20251021
  Serious: No
  Sender: REGENERON
  Company Number: US-REGENERON PHARMACEUTICALS, INC.-2024-153936

PATIENT
  Age: 37 Year
  Sex: Male

DRUGS (4)
  1. EVKEEZA [Suspect]
     Active Substance: EVINACUMAB-DGNB
     Indication: Type IIa hyperlipidaemia
  2. PRALUENT [Suspect]
     Active Substance: ALIROCUMAB
     Indication: Hyperlipidaemia
     Route: 065
  3. EZETIMIBE [Concomitant]
     Active Substance: EZETIMIBE
     Indication: Hyperlipidaemia
     Route: 065
  4. ATORVASTATIN [Concomitant]
     Active Substance: ATORVASTATIN
     Indication: Hyperlipidaemia
     Route: 065

REACTIONS (2)
  - Drug ineffective [Unknown]
  - Drug ineffective [Unknown]
